FAERS Safety Report 8403157-0 (Version None)
Quarter: 2012Q2

REPORT INFORMATION
  Report Type: 
  Country: None (occurrence: None)
  Receive Date: 20120601
  Receipt Date: 20120525
  Transmission Date: 20120825
  Serious: Yes (Hospitalization)
  Sender: FDA-Public Use
  Company Number: US-EISAI INC-E7389-01455-CLI-US

PATIENT
  Sex: Male

DRUGS (14)
  1. EPIRUBICIN HYDROCHLORIDE [Suspect]
     Indication: NON-SMALL CELL LUNG CANCER
     Route: 041
     Dates: start: 20110707
  2. NEURONTIN [Concomitant]
     Route: 048
     Dates: start: 20110629
  3. MIRALAX [Concomitant]
     Indication: CONSTIPATION
     Route: 048
     Dates: start: 20110714
  4. CLARITIN [Concomitant]
     Route: 048
     Dates: start: 20110714
  5. PRILOSEC [Concomitant]
     Route: 048
     Dates: start: 20110714
  6. VICODIN [Concomitant]
     Indication: METASTATIC PAIN
     Route: 048
     Dates: start: 20110629
  7. ACETAMINOPHEN [Concomitant]
     Indication: METASTATIC PAIN
     Route: 048
     Dates: start: 20110714
  8. BIOTENE [Concomitant]
     Route: 048
     Dates: start: 20110804
  9. FOLIC ACID [Concomitant]
     Indication: PREMEDICATION
     Dosage: UNKNOWN
     Route: 048
     Dates: start: 20110629
  10. VALTREX [Concomitant]
     Route: 048
     Dates: start: 20110804
  11. MEGACE [Concomitant]
     Indication: APPETITE DISORDER
     Route: 048
     Dates: start: 20110804
  12. MILK OF MAGNESIA TAB [Concomitant]
     Indication: CONSTIPATION
     Route: 048
     Dates: start: 20110825
  13. PEMETREXED [Suspect]
     Indication: NON-SMALL CELL LUNG CANCER
     Route: 041
     Dates: start: 20110707
  14. ZOMETA [Concomitant]
     Indication: PROPHYLAXIS
     Route: 058
     Dates: start: 20110318

REACTIONS (1)
  - SEPSIS SYNDROME [None]
